FAERS Safety Report 10723317 (Version 1)
Quarter: 2015Q1

REPORT INFORMATION
  Report Type: Spontaneous
  Country: US (occurrence: None)
  Receive Date: 20150114
  Receipt Date: 20150114
  Transmission Date: 20150721
  Serious: Yes (Death)
  Sender: FDA-Public Use
  Company Number: 54973 AE # 1591

PATIENT
  Age: 9 Month
  Sex: Female

DRUGS (2)
  1. BABY TEETHING [Suspect]
     Active Substance: ARABICA COFFEE BEAN\ATROPA BELLADONNA\CALCIUM PHOSPHATE\CHAMOMILE
     Indication: PYREXIA
     Dosage: 2 TABS CRUSHED IN MOUTH?
     Route: 048
  2. BABY TEETHING [Suspect]
     Active Substance: ARABICA COFFEE BEAN\ATROPA BELLADONNA\CALCIUM PHOSPHATE\CHAMOMILE
     Indication: TEETHING
     Dosage: 2 TABS CRUSHED IN MOUTH?
     Route: 048

REACTIONS (2)
  - Vomiting [None]
  - Wrong technique in drug usage process [None]

NARRATIVE: CASE EVENT DATE: 20140709
